FAERS Safety Report 4676534-1 (Version None)
Quarter: 2005Q2

REPORT INFORMATION
  Report Type: 
  Country: None (occurrence: None)
  Receive Date: 20050526
  Receipt Date: 20050526
  Transmission Date: 20051028
  Serious: Yes (Hospitalization)
  Sender: FDA-Public Use
  Company Number: None

PATIENT
  Age: 31 Year
  Sex: Female

DRUGS (2)
  1. TEQUIN [Suspect]
     Indication: URINARY TRACT INFECTION
     Dosage: ORAL; 400.0 MILLIGRAM
     Route: 048
     Dates: start: 20050412, end: 20050413
  2. ACETAMINOPHEN AND CODEINE   OPIOID ANALGESICS   TABLETS [Suspect]
     Indication: PAIN
     Dosage: ORAL
     Route: 048
     Dates: start: 20050412, end: 20050413

REACTIONS (1)
  - PANCREATITIS [None]
